FAERS Safety Report 7396821-6 (Version None)
Quarter: 2011Q1

REPORT INFORMATION
  Report Type: 
  Country: None (occurrence: None)
  Receive Date: 20110331
  Receipt Date: 20110331
  Transmission Date: 20110831
  Serious: Yes (Life-Threatening)
  Sender: FDA-Public Use
  Company Number: None

PATIENT
  Age: 59 Year
  Sex: Female
  Weight: 58 kg

DRUGS (1)
  1. CEFAZOLIN [Suspect]
     Indication: PROPHYLAXIS
     Dosage: 1 GM ONCE IV
     Route: 042
     Dates: start: 20110121, end: 20110121

REACTIONS (1)
  - CARDIO-RESPIRATORY ARREST [None]
